FAERS Safety Report 9561929 (Version 1)
Quarter: 2013Q3

REPORT INFORMATION
  Report Type: Spontaneous
  Country: JP (occurrence: JP)
  Receive Date: 20130927
  Receipt Date: 20130927
  Transmission Date: 20140515
  Serious: Yes (Hospitalization)
  Sender: FDA-Public Use
  Company Number: JP-ASTELLAS-2013JP009762

PATIENT
  Sex: Female

DRUGS (5)
  1. TACROLIMUS [Suspect]
     Indication: NEPHROTIC SYNDROME
     Route: 065
  2. MIZORIBINE [Concomitant]
     Indication: NEPHROTIC SYNDROME
     Route: 065
  3. PREDNISONE [Concomitant]
     Indication: NEPHROTIC SYNDROME
     Route: 065
  4. CICLOSPORIN [Concomitant]
     Indication: NEPHROTIC SYNDROME
     Route: 065
  5. DIURETICS [Concomitant]
     Indication: OEDEMA
     Route: 065

REACTIONS (2)
  - Drug ineffective for unapproved indication [Unknown]
  - Nephrotic syndrome [Unknown]
